FAERS Safety Report 16133992 (Version 1)
Quarter: 2019Q1

REPORT INFORMATION
  Report Type: Spontaneous
  Country: US (occurrence: US)
  Receive Date: 20190329
  Receipt Date: 20190329
  Transmission Date: 20190418
  Serious: No
  Sender: FDA-Public Use
  Company Number: US-BAUSCH-BL-2018-007718

PATIENT
  Age: 55 Year
  Sex: Female

DRUGS (3)
  1. TRETINOIN CREAM 0.1% [Suspect]
     Active Substance: TRETINOIN
     Route: 061
     Dates: start: 2012
  2. TRETINOIN CREAM 0.1% [Suspect]
     Active Substance: TRETINOIN
     Route: 061
  3. TRETINOIN CREAM 0.1% [Suspect]
     Active Substance: TRETINOIN
     Indication: THERAPEUTIC SKIN CARE TOPICAL
     Route: 061
     Dates: start: 2012

REACTIONS (1)
  - Application site erythema [Unknown]

NARRATIVE: CASE EVENT DATE: 2018
